FAERS Safety Report 9514921 (Version 2)
Quarter: 2013Q3

REPORT INFORMATION
  Report Type: Report from Study
  Country: US (occurrence: US)
  Receive Date: 20130911
  Receipt Date: 20130924
  Transmission Date: 20140515
  Serious: Yes (Life-Threatening, Hospitalization)
  Sender: FDA-Public Use
  Company Number: US-ROCHE-1272014

PATIENT
  Age: 70 Year
  Sex: Female

DRUGS (13)
  1. RIBAVIRIN [Suspect]
     Indication: CHRONIC HEPATITIS C
     Route: 048
     Dates: start: 20130702, end: 20130826
  2. BLINDED PEG-INTERFERON ALFA 2A [Suspect]
     Indication: CHRONIC HEPATITIS C
     Route: 058
     Dates: start: 20130702, end: 20130826
  3. BLINDED DACLATASVIR [Suspect]
     Indication: CHRONIC HEPATITIS C
     Route: 048
     Dates: start: 20130702, end: 20130826
  4. BLINDED PEG-INTERFERON LAMBDA [Suspect]
     Indication: CHRONIC HEPATITIS C
     Route: 058
     Dates: start: 20130702, end: 20130826
  5. ASPIRIN [Concomitant]
  6. GLIPIZIDE [Concomitant]
  7. HYDROCHLOROTHIAZIDE [Concomitant]
  8. LISINOPRIL [Concomitant]
  9. LORATADINE [Concomitant]
  10. METFORMIN HYDROCHLORIDE [Concomitant]
  11. NAPROXEN [Concomitant]
     Route: 065
     Dates: end: 20130712
  12. RANITIDINE [Concomitant]
  13. TEMAZEPAM [Concomitant]

REACTIONS (2)
  - Urosepsis [Not Recovered/Not Resolved]
  - Renal failure acute [Not Recovered/Not Resolved]
